FAERS Safety Report 13340693 (Version 1)
Quarter: 2017Q1

REPORT INFORMATION
  Report Type: Spontaneous
  Country: US (occurrence: US)
  Receive Date: 20170316
  Receipt Date: 20170316
  Transmission Date: 20170428
  Serious: Yes (Hospitalization)
  Sender: FDA-Public Use
  Company Number: US-INSYS THERAPEUTICS, INC-INS201701-000075

PATIENT
  Sex: Male

DRUGS (7)
  1. SUBSYS [Suspect]
     Active Substance: FENTANYL
     Route: 060
     Dates: start: 20121101
  2. DILAUDID [Suspect]
     Active Substance: HYDROMORPHONE HYDROCHLORIDE
     Route: 030
  3. SUBSYS [Suspect]
     Active Substance: FENTANYL
     Indication: BACK PAIN
     Route: 060
  4. VALIUM [Suspect]
     Active Substance: DIAZEPAM
     Route: 030
  5. BENADRYL [Suspect]
     Active Substance: DIPHENHYDRAMINE HYDROCHLORIDE
     Route: 030
  6. OXYCONTIN [Suspect]
     Active Substance: OXYCODONE HYDROCHLORIDE
  7. SUBSYS [Suspect]
     Active Substance: FENTANYL
     Route: 060

REACTIONS (13)
  - Immunosuppression [Unknown]
  - Fear [Unknown]
  - Depression [Unknown]
  - Abscess [Unknown]
  - Pain [Unknown]
  - Debridement [Unknown]
  - Scar [Unknown]
  - Cognitive disorder [Unknown]
  - Emotional distress [Unknown]
  - Androgen deficiency [Unknown]
  - Dependence [Unknown]
  - Condition aggravated [Unknown]
  - Tooth erosion [Unknown]
